FAERS Safety Report 5951979-8 (Version None)
Quarter: 2008Q4

REPORT INFORMATION
  Report Type: 
  Country: None (occurrence: None)
  Receive Date: 20081113
  Receipt Date: 20071016
  Transmission Date: 20090506
  Serious: No
  Sender: FDA-Public Use
  Company Number: A0687996A

PATIENT
  Age: 84 Year
  Sex: Male

DRUGS (5)
  1. COREG [Suspect]
     Indication: HYPERTENSION
     Dosage: 6.25MG TWICE PER DAY
     Route: 048
     Dates: start: 20040101, end: 20071001
  2. FOLIC ACID [Concomitant]
  3. SIMVASTATIN [Concomitant]
  4. SINGULAIR [Concomitant]
  5. LOTREL [Concomitant]

REACTIONS (1)
  - DIZZINESS [None]
